FAERS Safety Report 10024113 (Version 1)
Quarter: 2014Q1

REPORT INFORMATION
  Report Type: Spontaneous
  Country: US (occurrence: US)
  Receive Date: 20140320
  Receipt Date: 20140320
  Transmission Date: 20141002
  Serious: No
  Sender: FDA-Public Use
  Company Number: US-PFIZER INC-2014079795

PATIENT
  Age: 58 Year
  Sex: Female
  Weight: 79.37 kg

DRUGS (1)
  1. EFFEXOR XR [Suspect]
     Indication: MAJOR DEPRESSION
     Dosage: 150 MG, DAILY
     Dates: start: 2013

REACTIONS (3)
  - Panic attack [Unknown]
  - Stress [Unknown]
  - Joint swelling [Unknown]
